FAERS Safety Report 9672352 (Version 1)
Quarter: 2013Q4

REPORT INFORMATION
  Report Type: Spontaneous
  Country: AT (occurrence: AT)
  Receive Date: 20131106
  Receipt Date: 20131106
  Transmission Date: 20140711
  Serious: Yes (Hospitalization, Other)
  Sender: FDA-Public Use
  Company Number: AT-TEVA-440826ISR

PATIENT
  Age: 65 Year
  Sex: Female

DRUGS (39)
  1. SERTRALINE [Suspect]
     Dates: start: 20130614, end: 20130616
  2. SERTRALINE [Suspect]
     Dates: start: 20130617, end: 20130618
  3. SERTRALINE [Suspect]
     Dates: start: 20130619, end: 20130619
  4. SERTRALINE [Suspect]
     Dates: start: 20130626, end: 20130626
  5. SERTRALINE [Suspect]
     Dates: start: 20130627, end: 20130628
  6. SERTRALINE [Suspect]
     Dates: start: 20130629, end: 20130629
  7. SERTRALINE [Suspect]
     Dates: start: 20130711, end: 20130711
  8. SERTRALINE [Suspect]
     Dates: start: 20130612, end: 20130613
  9. SEROQUEL [Suspect]
     Dates: start: 20130625, end: 20130625
  10. SEROQUEL [Suspect]
     Dates: start: 20130626, end: 20130626
  11. SEROQUEL [Suspect]
     Dates: start: 20130627, end: 20130627
  12. SEROQUEL [Suspect]
     Dates: start: 20130628, end: 20130628
  13. SEROQUEL [Suspect]
     Dates: start: 20130629, end: 20130709
  14. SEROQUEL [Suspect]
     Dates: start: 20130710, end: 20130718
  15. SEROQUEL [Suspect]
     Dates: start: 20130719, end: 20130720
  16. MIRTABENE [Suspect]
     Dosage: BETWEEN 15-30MG
     Dates: start: 20130607, end: 20130624
  17. RIVOTRIL [Concomitant]
     Dates: start: 20130607, end: 20130610
  18. DOMINAL [Concomitant]
     Dosage: BETWEEN 40-80 MG
     Dates: start: 20130607
  19. ATARAX [Concomitant]
     Dates: start: 20130609
  20. IXEL [Concomitant]
     Dosage: SINCE A LONG TIME
     Dates: end: 20130610
  21. IXEL [Concomitant]
     Dosage: SINCE A LONG TIME
     Dates: start: 20130611, end: 20130612
  22. PRAXITEN [Concomitant]
     Dates: start: 20130612, end: 20130613
  23. TEMESTA [Concomitant]
     Dosage: BETWEEN 1-2 MG
     Dates: start: 20130614, end: 20130701
  24. TEMESTA [Concomitant]
     Dosage: BETWEEN 1-2 MG
     Dates: start: 20130702, end: 20130705
  25. TEMESTA [Concomitant]
     Dosage: BETWEEN 1-2 MG
     Dates: start: 20130706, end: 20130710
  26. TEMESTA [Concomitant]
     Dosage: BETWEEN 1-2 MG
     Dates: start: 20130711, end: 20130711
  27. TEMESTA [Concomitant]
     Dosage: BETWEEN 1-2 MG
     Dates: start: 20130712, end: 20130714
  28. TEMESTA [Concomitant]
     Dosage: BETWEEN 1-2 MG
     Dates: start: 20130715, end: 20130715
  29. TEMESTA [Concomitant]
     Dosage: BETWEEN 1-2 MG
     Dates: start: 20130716, end: 20130719
  30. ZOLDEM [Concomitant]
     Dates: start: 20130614
  31. INDERAL [Concomitant]
     Dates: start: 20130708, end: 20130708
  32. INDERAL [Concomitant]
     Dates: start: 20130709, end: 20130710
  33. INDERAL [Concomitant]
     Dates: start: 20130711, end: 20130712
  34. CIRCADIN RETARD [Concomitant]
     Dates: start: 20130708
  35. EFECTIN ER [Concomitant]
     Dates: start: 20130712, end: 20130716
  36. EFECTIN ER [Concomitant]
     Dates: start: 20130717
  37. CALMABEN DRAGEES [Concomitant]
     Dates: start: 20130721
  38. SAROTEN [Concomitant]
     Dosage: SINCE MONTHS
     Dates: end: 20130606
  39. LUMIGAN [Concomitant]
     Dosage: SINCE A LONG TIME

REACTIONS (1)
  - Pulmonary embolism [Recovered/Resolved]
